FAERS Safety Report 8765446 (Version 1)
Quarter: 2012Q4

REPORT INFORMATION
  Report Type: 
  Country: US (occurrence: US)
  Receive Date: 20120901
  Receipt Date: 20120901
  Transmission Date: 20130627
  Serious: Yes (Other)
  Sender: FDA-Public Use
  Company Number: US-PFIZER INC-2012212121

PATIENT
  Age: 23 Year
  Sex: Female
  Weight: 54.42 kg

DRUGS (2)
  1. ADVIL PM [Suspect]
     Indication: PROCEDURAL PAIN
     Dosage: (four caplets), UNK
     Route: 048
     Dates: start: 20120827, end: 20120827
  2. ADVIL [Suspect]
     Indication: PROCEDURAL PAIN
     Dosage: UNK
     Route: 048

REACTIONS (6)
  - Accidental exposure to product [Unknown]
  - Incorrect dose administered [Unknown]
  - Loss of consciousness [Recovered/Resolved]
  - Dysstasia [Recovered/Resolved]
  - Expired drug administered [Unknown]
  - Dizziness [Recovered/Resolved]
